FAERS Safety Report 4849347-5 (Version None)
Quarter: 2005Q4

REPORT INFORMATION
  Report Type: 
  Country: None (occurrence: None)
  Receive Date: 20051207
  Receipt Date: 20051129
  Transmission Date: 20060501
  Serious: Yes (Other)
  Sender: FDA-Public Use
  Company Number: 2005141699

PATIENT
  Age: 82 Year
  Sex: Female

DRUGS (9)
  1. ZYRTEC [Suspect]
     Indication: PRURITUS
     Dosage: 10 MG (10 MG, 1 IN 1 D),
     Dates: start: 20050422
  2. ZYRTEC [Suspect]
     Indication: RASH
     Dosage: 10 MG (10 MG, 1 IN 1 D),
     Dates: start: 20050422
  3. ALLEGRA [Suspect]
     Indication: PRURITUS
     Dosage: 180 MG (180 MG, 1 IN 1 D),
     Dates: start: 20050422, end: 20050615
  4. ALLEGRA [Suspect]
     Indication: RASH
     Dosage: 180 MG (180 MG, 1 IN 1 D),
     Dates: start: 20050422, end: 20050615
  5. DEXCHLORPHENIRAMINE MALEATE [Suspect]
     Indication: ILL-DEFINED DISORDER
     Dosage: 24 MG (6 MG, 4 IN 1 D),
  6. LEVOXYL [Concomitant]
  7. ENALAPRIL MALEATE [Concomitant]
  8. ZETIA [Concomitant]
  9. CARDIZEM [Concomitant]

REACTIONS (9)
  - CONTUSION [None]
  - DIARRHOEA [None]
  - DIZZINESS [None]
  - FALL [None]
  - FOOT FRACTURE [None]
  - HALLUCINATION [None]
  - INFLUENZA [None]
  - PALPITATIONS [None]
  - VOMITING [None]
